FAERS Safety Report 7204105-1 (Version None)
Quarter: 2010Q4

REPORT INFORMATION
  Report Type: 
  Country: None (occurrence: None)
  Receive Date: 20101230
  Receipt Date: 20101228
  Transmission Date: 20110411
  Serious: Yes (Other)
  Sender: FDA-Public Use
  Company Number: US-PFIZER INC-2010180677

PATIENT
  Sex: Female
  Weight: 77.098 kg

DRUGS (2)
  1. PREMPRO [Suspect]
     Indication: MENOPAUSAL SYMPTOMS
     Dosage: 0.3/1.5 MG ONCE A DAY FOR TWENTY EIGHT DAYS
     Route: 048
     Dates: start: 19950101, end: 20070101
  2. PREMPRO [Suspect]
     Dosage: 0.3/1.5 MG
     Route: 048
     Dates: start: 20080101

REACTIONS (11)
  - ANXIETY [None]
  - DEPRESSION [None]
  - FEELING ABNORMAL [None]
  - FORMICATION [None]
  - HEADACHE [None]
  - MOOD SWINGS [None]
  - NIGHTMARE [None]
  - PAIN [None]
  - PANIC ATTACK [None]
  - PRURITUS [None]
  - TREMOR [None]
